FAERS Safety Report 5853873-X (Version None)
Quarter: 2008Q3

REPORT INFORMATION
  Report Type: 
  Country: None (occurrence: None)
  Receive Date: 20080822
  Receipt Date: 20080821
  Transmission Date: 20090109
  Serious: Yes (Hospitalization)
  Sender: FDA-Public Use
  Company Number: A0713034A

PATIENT
  Age: 61 Year
  Sex: Female
  Weight: 90 kg

DRUGS (4)
  1. AVANDIA [Suspect]
     Dosage: 4MG PER DAY
     Route: 048
     Dates: start: 20040805, end: 20061018
  2. GLYBURIDE [Concomitant]
     Dates: start: 19990601, end: 20070701
  3. HUMULIN N [Concomitant]
     Dates: start: 19990601
  4. CHLOROTHIAZIDE [Concomitant]
     Dates: start: 20051001

REACTIONS (6)
  - ANXIETY [None]
  - DISABILITY [None]
  - INJURY [None]
  - MYOCARDIAL INFARCTION [None]
  - PAIN [None]
  - SCAR [None]
